FAERS Safety Report 25066050 (Version 2)
Quarter: 2025Q3

REPORT INFORMATION
  Report Type: Spontaneous
  Country: CA (occurrence: CA)
  Receive Date: 20250312
  Receipt Date: 20250809
  Transmission Date: 20251021
  Serious: Yes (Other)
  Sender: ALEXION PHARMACEUTICALS
  Company Number: CA-AstraZeneca-CH-00824203A

PATIENT
  Sex: Male

DRUGS (6)
  1. IMFINZI [Suspect]
     Active Substance: DURVALUMAB
     Route: 065
  2. CISPLATIN [Concomitant]
     Active Substance: CISPLATIN
     Route: 065
  3. DURVALUMAB [Concomitant]
     Active Substance: DURVALUMAB
     Route: 065
  4. GEMCITABINE [Concomitant]
     Active Substance: GEMCITABINE
     Route: 065
  5. FLUOROURACIL\LEUCOVORIN CALCIUM\OXALIPLATIN [Concomitant]
     Active Substance: FLUOROURACIL\LEUCOVORIN CALCIUM\OXALIPLATIN
     Route: 065
  6. TRASTUZUMAB [Concomitant]
     Active Substance: TRASTUZUMAB
     Route: 065

REACTIONS (2)
  - Neuropathy peripheral [Unknown]
  - Metastases to lung [Unknown]
